FAERS Safety Report 8026555-6 (Version None)
Quarter: 2012Q1

REPORT INFORMATION
  Report Type: 
  Country: None (occurrence: None)
  Receive Date: 20120106
  Receipt Date: 20111214
  Transmission Date: 20120608
  Serious: Yes (Death, Other)
  Sender: FDA-Public Use
  Company Number: US-PAR PHARMACEUTICAL, INC-2011SCPR003674

PATIENT
  Age: 26 Year
  Sex: Male

DRUGS (3)
  1. HEROIN [Suspect]
     Indication: PRODUCT USED FOR UNKNOWN INDICATION
     Dosage: UNK, UNKNOWN
     Route: 048
  2. THC HOMOLOG [Suspect]
     Indication: PRODUCT USED FOR UNKNOWN INDICATION
     Dosage: UNK, UNKNOWN
     Route: 048
  3. ALPRAZOLAM [Suspect]
     Indication: PRODUCT USED FOR UNKNOWN INDICATION
     Dosage: UNK, UNKNOWN
     Route: 048

REACTIONS (19)
  - PULMONARY OEDEMA [None]
  - MENTAL STATUS CHANGES [None]
  - DEATH [None]
  - DRUG ABUSE [None]
  - HYPOTENSION [None]
  - ELECTROCARDIOGRAM QT PROLONGED [None]
  - UNRESPONSIVE TO STIMULI [None]
  - VISCERAL CONGESTION [None]
  - BLOOD CALCIUM DECREASED [None]
  - TOXICITY TO VARIOUS AGENTS [None]
  - CARDIO-RESPIRATORY ARREST [None]
  - LOSS OF CONSCIOUSNESS [None]
  - VENTRICULAR TACHYCARDIA [None]
  - ASPARTATE AMINOTRANSFERASE INCREASED [None]
  - POISONING [None]
  - REFUSAL OF TREATMENT BY PATIENT [None]
  - CONGESTIVE CARDIOMYOPATHY [None]
  - BLOOD GLUCOSE INCREASED [None]
  - FOAMING AT MOUTH [None]
